FAERS Safety Report 23823410 (Version 1)
Quarter: 2024Q2

REPORT INFORMATION
  Report Type: Spontaneous
  Country: IT (occurrence: IT)
  Receive Date: 20240507
  Receipt Date: 20240507
  Transmission Date: 20240716
  Serious: Yes (Hospitalization)
  Sender: FDA-Public Use
  Company Number: IT-MINISAL02-982449

PATIENT
  Age: 27 Year
  Sex: Female

DRUGS (3)
  1. QUETIAPINE [Suspect]
     Active Substance: QUETIAPINE
     Indication: Depression
     Dosage: 25 MILLIGRAM
     Route: 048
     Dates: start: 2023, end: 20240408
  2. BROMAZEPAM [Suspect]
     Active Substance: BROMAZEPAM
     Indication: Anxiety
     Dosage: 1.5 MILLIGRAM
     Route: 048
     Dates: start: 2023, end: 20240408
  3. CIPRALEX [Suspect]
     Active Substance: ESCITALOPRAM OXALATE
     Indication: Anxiety
     Dosage: 20 MILLIGRAM
     Route: 048

REACTIONS (1)
  - Feeling jittery [Recovering/Resolving]

NARRATIVE: CASE EVENT DATE: 20240408
